FAERS Safety Report 8152197-8 (Version None)
Quarter: 2012Q1

REPORT INFORMATION
  Report Type: 
  Country: None (occurrence: None)
  Receive Date: 20120215
  Receipt Date: 20120215
  Transmission Date: 20120608
  Serious: Yes (Other)
  Sender: FDA-Public Use
  Company Number: None

PATIENT
  Age: 35 Year
  Sex: Female

DRUGS (4)
  1. REVLIMID [Suspect]
     Indication: MULTIPLE MYELOMA
     Dosage: 25 MG DAILY X21D/28D ORALLY
     Route: 048
     Dates: start: 20110701
  2. FAMOTIDINE [Concomitant]
  3. LORAZEPAM [Concomitant]
  4. OXYCODONE HCL [Concomitant]

REACTIONS (9)
  - LIP SWELLING [None]
  - JOINT SWELLING [None]
  - ARTHRALGIA [None]
  - URTICARIA [None]
  - RASH [None]
  - ORAL HERPES [None]
  - PRURITUS [None]
  - HYPERSENSITIVITY [None]
  - FURUNCLE [None]
